FAERS Safety Report 17401022 (Version 5)
Quarter: 2022Q1

REPORT INFORMATION
  Report Type: Report from Study
  Country: US (occurrence: US)
  Receive Date: 20200211
  Receipt Date: 20220103
  Transmission Date: 20220423
  Serious: Yes (Other)
  Sender: FDA-Public Use
  Company Number: US-BRISTOL-MYERS SQUIBB COMPANY-BMS-2020-010453

PATIENT
  Age: 91 Year
  Sex: Female
  Weight: 67.58 kg

DRUGS (8)
  1. APIXABAN [Suspect]
     Active Substance: APIXABAN
     Indication: Cerebrovascular accident prophylaxis
     Dosage: 2.5 MILLIGRAM, BID
     Route: 048
     Dates: start: 201909
  2. PLAVIX [Suspect]
     Active Substance: CLOPIDOGREL BISULFATE
     Indication: Product used for unknown indication
     Dosage: 75 MILLIGRAM, DAILY (UNKNOWN FREQUENCY)
     Route: 065
  3. LEVOTHYROXINE [Concomitant]
     Active Substance: LEVOTHYROXINE
     Indication: Thyroid disorder
     Dosage: 75 MILLIGRAM
     Route: 065
  4. LEVOTHYROXINE [Concomitant]
     Active Substance: LEVOTHYROXINE
     Dosage: 88 MILLIGRAM
     Route: 065
  5. METOPROLOL [Concomitant]
     Active Substance: METOPROLOL
     Indication: Blood pressure measurement
     Dosage: 25 MILLIGRAM, QD
     Route: 065
  6. MACUGUARD OCULAR SUPPORT [Concomitant]
     Indication: Product used for unknown indication
     Dosage: UNK
     Route: 065
  7. COQ10 [ASCORBIC ACID;BETACAROTENE;CUPRIC OXIDE;MANGANESE SULFATE;SELEN [Concomitant]
     Indication: Product used for unknown indication
     Dosage: UNK
     Route: 065
  8. VITAMINS [Concomitant]
     Active Substance: VITAMINS
     Indication: Product used for unknown indication
     Dosage: UNK
     Route: 065

REACTIONS (16)
  - Blindness [Unknown]
  - Haemorrhage [Unknown]
  - Nerve injury [Unknown]
  - Pulmonary haemorrhage [Unknown]
  - Aortic injury [Unknown]
  - White coat hypertension [Unknown]
  - Myalgia [Unknown]
  - Flatulence [Unknown]
  - Contusion [Unknown]
  - Weight increased [Unknown]
  - Pain in extremity [Unknown]
  - Swollen tongue [Unknown]
  - Bite [Unknown]
  - Gait disturbance [Unknown]
  - Dyspnoea [Unknown]
  - Groin pain [Unknown]

NARRATIVE: CASE EVENT DATE: 20190918
